FAERS Safety Report 17606296 (Version 1)
Quarter: 2020Q1

REPORT INFORMATION
  Report Type: Spontaneous
  Country: NL (occurrence: NL)
  Receive Date: 20200331
  Receipt Date: 20200331
  Transmission Date: 20200409
  Serious: Yes (Hospitalization)
  Sender: FDA-Public Use
  Company Number: NL-TEVA-2020-NL-1212954

PATIENT
  Age: 83 Year
  Sex: Female
  Weight: 68.1 kg

DRUGS (9)
  1. METOCLOPRAMIDE. [Concomitant]
     Active Substance: METOCLOPRAMIDE
     Dosage: TABLET, 10 MG (MILLIGRAM)
  2. SALBUTAMOL/IPRATROPIUM [Concomitant]
     Active Substance: ALBUTEROL\IPRATROPIUM
     Dosage: NEBULIZER, 1 / 0.2 MG / ML (MILLIGRAMS PER MILLILITER)
  3. TEMAZEPAM. [Concomitant]
     Active Substance: TEMAZEPAM
     Dosage: CAPSULE, 10 MG (MILLIGRAM)
  4. SUCRALFAAT [Concomitant]
     Dosage: SUSPENSION, 1 G (GRAMS)
  5. OXAZEPAM. [Concomitant]
     Active Substance: OXAZEPAM
     Dosage: TABLET, 10 MG (MILLIGRAM)
  6. PACLITAXEL. [Suspect]
     Active Substance: PACLITAXEL
     Indication: OESOPHAGEAL CARCINOMA
     Dosage: 1 PER . 1 DOSAGE FORMS
     Dates: start: 20200127, end: 20200302
  7. CARBOPLATIN. [Suspect]
     Active Substance: CARBOPLATIN
     Indication: OESOPHAGEAL CARCINOMA
     Dosage: 1 PER WEEK. 1 DOSAGE FORMS
     Dates: start: 20200127, end: 20200302
  8. LOPERAMIDE [Concomitant]
     Active Substance: LOPERAMIDE
     Dosage: CAPSULE, 2 MG (MILLIGRAM)
  9. OXYCODON [Concomitant]
     Active Substance: OXYCODONE
     Dosage: CAPSULE, 5 MG (MILLIGRAM)

REACTIONS (1)
  - Pancytopenia [Not Recovered/Not Resolved]

NARRATIVE: CASE EVENT DATE: 20200304
